FAERS Safety Report 9079783 (Version 6)
Quarter: 2015Q1

REPORT INFORMATION
  Report Type: Spontaneous
  Country: FR (occurrence: FR)
  Receive Date: 20130129
  Receipt Date: 20150212
  Transmission Date: 20150721
  Serious: Yes (Disabling, Other)
  Sender: FDA-Public Use
  Company Number: FR-009507513-1301FRA008752

PATIENT
  Age: 44 Year
  Sex: Male
  Weight: 74 kg

DRUGS (4)
  1. XANAX [Concomitant]
     Active Substance: ALPRAZOLAM
     Indication: PRODUCT USED FOR UNKNOWN INDICATION
     Dosage: 0.5 DF, UNK
     Route: 048
     Dates: start: 20121220, end: 20130104
  2. VIRAFERONPEG [Suspect]
     Active Substance: PEGINTERFERON ALFA-2B
     Indication: PRODUCT USED FOR UNKNOWN INDICATION
     Dosage: 100 MICROGRAM, QW
     Route: 058
     Dates: start: 20121019, end: 20130104
  3. REBETOL [Suspect]
     Active Substance: RIBAVIRIN
     Indication: PRODUCT USED FOR UNKNOWN INDICATION
     Dosage: 200 MG, QD
     Route: 048
     Dates: start: 20121019, end: 20130104
  4. ZOLPIDEM TARTRATE. [Concomitant]
     Active Substance: ZOLPIDEM TARTRATE
     Indication: PRODUCT USED FOR UNKNOWN INDICATION
     Dosage: 0.5 DF, UNK
     Route: 048
     Dates: start: 201201, end: 20130104

REACTIONS (31)
  - Fatigue [Unknown]
  - Tinnitus [Unknown]
  - Exercise tolerance decreased [Unknown]
  - Malaise [Unknown]
  - Fatigue [Unknown]
  - Dry skin [Unknown]
  - Chest pain [Unknown]
  - Blindness unilateral [Not Recovered/Not Resolved]
  - Visual acuity reduced [Not Recovered/Not Resolved]
  - Insomnia [Unknown]
  - Glare [Unknown]
  - Hallucination, visual [Unknown]
  - Photopsia [Unknown]
  - Trismus [Unknown]
  - Optic neuritis [Not Recovered/Not Resolved]
  - Vision blurred [Unknown]
  - Anaemia [Unknown]
  - Visual field defect [Not Recovered/Not Resolved]
  - Anxiety [Unknown]
  - Stress [Unknown]
  - Dizziness [Unknown]
  - Pain of skin [Unknown]
  - Fear [Unknown]
  - Mood swings [Unknown]
  - Pallor [Unknown]
  - Eye pain [Unknown]
  - Impaired driving ability [Unknown]
  - Visual impairment [Unknown]
  - Migraine [Unknown]
  - Gingival bleeding [Unknown]
  - Depression [Unknown]

NARRATIVE: CASE EVENT DATE: 20121226
